FAERS Safety Report 13895830 (Version 3)
Quarter: 2017Q4

REPORT INFORMATION
  Report Type: Spontaneous
  Country: IT (occurrence: IT)
  Receive Date: 20170823
  Receipt Date: 20171113
  Transmission Date: 20180320
  Serious: Yes (Death)
  Sender: FDA-Public Use
  Company Number: IT-ACCORD-057464

PATIENT
  Age: 75 Year
  Sex: Female
  Weight: 78 kg

DRUGS (4)
  1. BLOPRESID TAKEDA ITALIA S.P.A. [Concomitant]
     Route: 048
  2. CAPECITABINE ACCORD [Suspect]
     Active Substance: CAPECITABINE
     Indication: COLON NEOPLASM
     Route: 048
     Dates: start: 20170721, end: 20170803
  3. CONGESCOR BB FARMA S.R.L. [Concomitant]
     Route: 048
  4. AMIODAR ALFASIGMA S.P.A. [Concomitant]
     Route: 048

REACTIONS (3)
  - Pancytopenia [Fatal]
  - Multiple organ dysfunction syndrome [Fatal]
  - Mucosal inflammation [Fatal]

NARRATIVE: CASE EVENT DATE: 20170731
